FAERS Safety Report 24073248 (Version 1)
Quarter: 2024Q3

REPORT INFORMATION
  Report Type: Report from Study
  Country: IN (occurrence: IN)
  Receive Date: 20240710
  Receipt Date: 20240710
  Transmission Date: 20241017
  Serious: Yes (Other)
  Sender: TAKEDA
  Company Number: IN-TAKEDA-2024TUS006394

PATIENT
  Sex: Male

DRUGS (1)
  1. VEDOLIZUMAB [Suspect]
     Active Substance: VEDOLIZUMAB
     Indication: Crohn^s disease
     Dosage: 300 MILLIGRAM
     Route: 042
     Dates: start: 20230821, end: 20231208

REACTIONS (5)
  - Diarrhoea [Unknown]
  - Malaise [Unknown]
  - Oedema peripheral [Unknown]
  - Protein deficiency [Unknown]
  - Drug ineffective [Unknown]
